FAERS Safety Report 11348872 (Version 1)
Quarter: 2015Q3

REPORT INFORMATION
  Report Type: Spontaneous
  Country: US (occurrence: US)
  Receive Date: 20150806
  Receipt Date: 20150806
  Transmission Date: 20151125
  Serious: Yes (Hospitalization)
  Sender: FDA-Public Use
  Company Number: PHEH2015US009140

PATIENT
  Age: 15 Year
  Sex: Male

DRUGS (1)
  1. CLOZARIL [Suspect]
     Active Substance: CLOZAPINE
     Indication: SCHIZOPHRENIA
     Route: 065

REACTIONS (4)
  - Schizophrenia [Unknown]
  - Off label use [Unknown]
  - Mental disorder [Unknown]
  - Drug administered to patient of inappropriate age [Unknown]
